APPROVED DRUG PRODUCT: METOLAZONE
Active Ingredient: METOLAZONE
Strength: 10MG
Dosage Form/Route: TABLET;ORAL
Application: A075543 | Product #003
Applicant: ANI PHARMACEUTICALS INC
Approved: Dec 24, 2003 | RLD: No | RS: No | Type: DISCN